FAERS Safety Report 4944487-4 (Version None)
Quarter: 2006Q1

REPORT INFORMATION
  Report Type: 
  Country: None (occurrence: None)
  Receive Date: 20060315
  Receipt Date: 20060307
  Transmission Date: 20060701
  Serious: Yes (Hospitalization)
  Sender: FDA-Public Use
  Company Number: FR-AVENTIS-200610907FR

PATIENT

DRUGS (1)
  1. KETEK [Suspect]

REACTIONS (3)
  - ABDOMINAL DISTENSION [None]
  - DYSPNOEA [None]
  - INTESTINAL SPASM [None]
